FAERS Safety Report 23223176 (Version 8)
Quarter: 2024Q1

REPORT INFORMATION
  Report Type: Report from Study
  Country: US (occurrence: US)
  Receive Date: 20231123
  Receipt Date: 20240122
  Transmission Date: 20240409
  Serious: Yes (Other)
  Sender: FDA-Public Use
  Company Number: US-JAZZ PHARMACEUTICALS-2022-US-027346

PATIENT
  Age: 29 Year
  Sex: Female

DRUGS (18)
  1. XYWAV [Suspect]
     Active Substance: CALCIUM OXYBATE\MAGNESIUM OXYBATE\POTASSIUM OXYBATE\SODIUM OXYBATE
     Indication: Narcolepsy
     Dosage: UNK
     Route: 048
  2. XYWAV [Suspect]
     Active Substance: CALCIUM OXYBATE\MAGNESIUM OXYBATE\POTASSIUM OXYBATE\SODIUM OXYBATE
     Indication: Cataplexy
     Dosage: 3.5 GRAM, BID
  3. XYWAV [Suspect]
     Active Substance: CALCIUM OXYBATE\MAGNESIUM OXYBATE\POTASSIUM OXYBATE\SODIUM OXYBATE
     Indication: Somnolence
     Dosage: 2.75 GRAM, BID
  4. SYEDA [Concomitant]
     Active Substance: DROSPIRENONE\ETHINYL ESTRADIOL
     Indication: Product used for unknown indication
     Dosage: 28 TABLET
     Dates: start: 20230901
  5. NALTREXONE [Concomitant]
     Active Substance: NALTREXONE
     Indication: Fibromyalgia
     Dosage: UNK
     Dates: start: 20230601
  6. NALTREXONE [Concomitant]
     Active Substance: NALTREXONE
     Indication: Fatigue
  7. PROPRANOLOL [Concomitant]
     Active Substance: PROPRANOLOL HYDROCHLORIDE
     Indication: Product used for unknown indication
     Dosage: 0000
     Dates: start: 20231214
  8. GABAPENTIN [Concomitant]
     Active Substance: GABAPENTIN
     Indication: Product used for unknown indication
     Dosage: 0000
     Dates: start: 20220624
  9. CYANOCOBALAMIN [Concomitant]
     Active Substance: CYANOCOBALAMIN
     Indication: Product used for unknown indication
     Dosage: 1,000 MCG/ML VL
     Dates: start: 20231201
  10. ACETYLCYSTEINE [Concomitant]
     Active Substance: ACETYLCYSTEINE
     Indication: Product used for unknown indication
     Dosage: 0000
     Dates: start: 20231207
  11. MAGNESIUM OXIDE [Concomitant]
     Active Substance: MAGNESIUM OXIDE
     Indication: Product used for unknown indication
     Dosage: 0000
     Dates: start: 20231021
  12. VITAMIN D2 [Concomitant]
     Active Substance: ERGOCALCIFEROL
     Indication: Product used for unknown indication
     Dosage: 0000
     Dates: start: 20231201
  13. PROBIOTIC BLEND [Concomitant]
     Indication: Product used for unknown indication
     Dosage: 0000
     Dates: start: 20231121
  14. BEET ROOT WITH MAGNESIUM + VITAMIN C [Concomitant]
     Indication: Product used for unknown indication
     Dosage: 0000
     Dates: start: 20231021
  15. VITAMIN B COMPLEX [Concomitant]
     Active Substance: CYANOCOBALAMIN\DEXPANTHENOL\NIACINAMIDE\PYRIDOXINE HYDROCHLORIDE\RIBOFLAVIN 5^-PHOSPHATE SODIUM\THIA
     Indication: Product used for unknown indication
     Dosage: 0000
     Dates: start: 20231207
  16. CANDICIDINE [Concomitant]
     Indication: Product used for unknown indication
     Dosage: 0000
     Dates: start: 20231207
  17. GLUTALOEMINE [Concomitant]
     Indication: Product used for unknown indication
     Dosage: 0000
     Dates: start: 20231219
  18. VYVANSE [Concomitant]
     Active Substance: LISDEXAMFETAMINE DIMESYLATE
     Indication: Attention deficit hyperactivity disorder

REACTIONS (19)
  - Syncope [Unknown]
  - Aphthous ulcer [Unknown]
  - Infection [Unknown]
  - Gastrooesophageal reflux disease [Unknown]
  - Emergency care [Unknown]
  - Vitamin B12 abnormal [Unknown]
  - Unevaluable event [Unknown]
  - Hepatic steatosis [Recovered/Resolved]
  - Anaemia [Recovering/Resolving]
  - Dysphagia [Recovering/Resolving]
  - Wisdom teeth removal [Unknown]
  - Pain [Unknown]
  - Dyspnoea [Unknown]
  - Dry mouth [Unknown]
  - Phlebolith [Unknown]
  - Varicose vein [Unknown]
  - Borderline personality disorder [Unknown]
  - Hypoglycaemia [Unknown]
  - Product administration interrupted [Unknown]

NARRATIVE: CASE EVENT DATE: 20231104
